FAERS Safety Report 4693858-2 (Version None)
Quarter: 2005Q2

REPORT INFORMATION
  Report Type: 
  Country: None (occurrence: None)
  Receive Date: 20050615
  Receipt Date: 20050602
  Transmission Date: 20051028
  Serious: Yes (Hospitalization, Other)
  Sender: FDA-Public Use
  Company Number: 2005085463

PATIENT
  Age: 76 Year
  Sex: Male
  Weight: 68.9467 kg

DRUGS (9)
  1. CELEBREX [Suspect]
     Indication: ARTHRITIS
     Dosage: 200 MG (200 MG, 1 IN 1 D), ORAL
     Route: 048
  2. NEURONTIN [Suspect]
     Indication: PAIN IN EXTREMITY
     Dosage: ORAL
     Route: 048
  3. PRILOSEC [Concomitant]
  4. TRAZODONE (TRAZODONE) [Concomitant]
  5. ANTIBIOTICS (ANTIBIOTICS) [Concomitant]
  6. NITROFURANTOIN [Concomitant]
  7. AMITRIPTYLINE (AMITRIPTYLINE) [Concomitant]
  8. CLONAZEPAM [Concomitant]
  9. FOLIC ACID [Concomitant]

REACTIONS (7)
  - AORTIC VALVE INCOMPETENCE [None]
  - INTESTINAL OBSTRUCTION [None]
  - LUNG DISORDER [None]
  - PNEUMONIA [None]
  - PULMONARY HYPERTENSION [None]
  - RESPIRATORY FAILURE [None]
  - VENTRICULAR DYSFUNCTION [None]
